FAERS Safety Report 8540127 (Version 2)
Quarter: 2012Q4

REPORT INFORMATION
  Report Type: 
  Country: NZ (occurrence: NZ)
  Receive Date: 20120502
  Receipt Date: 20121217
  Transmission Date: 20130627
  Serious: Yes (Death, Hospitalization)
  Sender: FDA-Public Use
  Company Number: PHHY2012NZ036752

PATIENT
  Sex: Female

DRUGS (6)
  1. CLOZARIL [Suspect]
     Indication: SCHIZOPHRENIA
     Dosage: 50 mg, daily
     Route: 048
     Dates: start: 20080402
  2. CLOZARIL [Suspect]
     Dosage: 37.5 mg, dily
  3. MIRTAZAPINE [Concomitant]
     Dosage: 30 mg, UNK
  4. TEMAZEPAM [Concomitant]
     Dosage: 20 mg, UNK
  5. SINEMET [Concomitant]
     Dosage: 50/200, QID
  6. SINEMET [Concomitant]
     Dosage: 25/100, (6 Times a day)

REACTIONS (5)
  - Pulmonary embolism [Fatal]
  - Colon cancer [Unknown]
  - Gastrointestinal carcinoma [Unknown]
  - Rectal haemorrhage [Unknown]
  - Anaemia [Unknown]
